FAERS Safety Report 8850761 (Version 3)
Quarter: 2013Q1

REPORT INFORMATION
  Report Type: Spontaneous
  Country: US (occurrence: US)
  Receive Date: 20121019
  Receipt Date: 20130126
  Transmission Date: 20140127
  Serious: No
  Sender: FDA-Public Use
  Company Number: US-009507513-1209USA009429

PATIENT
  Age: 25 Year
  Sex: Female
  Weight: 45.81 kg

DRUGS (3)
  1. SAPHRIS [Suspect]
     Indication: ANXIETY
     Dosage: 5 MG, HS
     Route: 060
     Dates: start: 20120814, end: 20120815
  2. SAPHRIS [Suspect]
     Indication: AGITATION
  3. CELEXA [Concomitant]
     Indication: DEPRESSION
     Dosage: 40 MG, UNK
     Route: 048

REACTIONS (7)
  - Feeling drunk [Recovered/Resolved]
  - Fall [Unknown]
  - Balance disorder [Unknown]
  - Coordination abnormal [Unknown]
  - Hangover [Unknown]
  - Dizziness [Unknown]
  - Asthenia [Unknown]
